FAERS Safety Report 6095575-3 (Version None)
Quarter: 2009Q1

REPORT INFORMATION
  Report Type: 
  Country: None (occurrence: None)
  Receive Date: 20090227
  Receipt Date: 20080514
  Transmission Date: 20090719
  Serious: No
  Sender: FDA-Public Use
  Company Number: A0725602A

PATIENT
  Age: 63 Year
  Sex: Male

DRUGS (4)
  1. LAMICTAL [Suspect]
     Indication: EPILEPSY
     Dosage: 50MG TWICE PER DAY
     Route: 048
     Dates: start: 20080401
  2. BENZODIAZEPINE [Concomitant]
  3. PRILOSEC [Concomitant]
  4. VITAMINS [Concomitant]

REACTIONS (1)
  - PRURITUS [None]
